FAERS Safety Report 6388970-6 (Version None)
Quarter: 2009Q4

REPORT INFORMATION
  Report Type: 
  Country: None (occurrence: None)
  Receive Date: 20091001
  Receipt Date: 20090922
  Transmission Date: 20100525
  Serious: Yes (Hospitalization)
  Sender: FDA-Public Use
  Company Number: ADR28612009

PATIENT
  Age: 85 Year
  Sex: Male

DRUGS (11)
  1. RAMIPRIL [Suspect]
     Dosage: 5 MG, ORAL
     Route: 048
  2. CHAMPIX (O.5 MG) [Concomitant]
  3. ALENDRONIC ACID [Concomitant]
  4. ASPIRIN [Concomitant]
  5. DILTIAZEM [Concomitant]
  6. GLYCERYL TRINITRATE [Concomitant]
  7. LANSOPRAZOLE [Concomitant]
  8. PREDNISOLONE [Concomitant]
  9. QUININE SULPHATE [Concomitant]
  10. SERETIDE [Concomitant]
  11. SIMVASTASTIN [Concomitant]

REACTIONS (3)
  - AMNESIA [None]
  - HEAD INJURY [None]
  - SYNCOPE [None]
